FAERS Safety Report 8550366 (Version 4)
Quarter: 2013Q3

REPORT INFORMATION
  Report Type: Spontaneous
  Country: US (occurrence: US)
  Receive Date: 20120507
  Receipt Date: 20130807
  Transmission Date: 20140515
  Serious: Yes (Death, Hospitalization)
  Sender: FDA-Public Use
  Company Number: US-AMGEN-USASP2012005201

PATIENT
  Age: 57 Year
  Sex: Male
  Weight: 125 kg

DRUGS (83)
  1. PROCRIT [Suspect]
     Indication: ANAEMIA
     Dosage: 40000 UNIT, UNK
     Route: 058
     Dates: start: 20060422, end: 20060502
  2. AVANDIA [Concomitant]
     Dosage: 8 MG, QD
     Route: 048
  3. AVANDIA [Concomitant]
     Dosage: 4 MG, UNK
     Dates: start: 20060423
  4. BENAZEPRIL [Concomitant]
     Indication: HYPERTENSION
     Dosage: 20 MG, BID
     Route: 048
  5. LASIX                              /00032601/ [Concomitant]
     Dosage: 80 MG, QD
     Route: 048
     Dates: end: 20060425
  6. NORVASC [Concomitant]
     Indication: HYPERTENSION
     Dosage: 10 MG, QD
     Route: 048
  7. SKELAXIN                           /00611501/ [Concomitant]
     Dosage: 800 MG, BID
     Route: 048
  8. NASONEX [Concomitant]
     Dosage: 50 MUG, UNK
  9. TRICOR                             /00090101/ [Concomitant]
     Dosage: 160 MG, QD
     Route: 048
  10. TRICOR                             /00090101/ [Concomitant]
     Dosage: 145 MG, QD
     Route: 048
     Dates: start: 20060423
  11. ZOCOR [Concomitant]
     Dosage: 40 MG, QD
     Route: 048
     Dates: start: 20060424
  12. DURAGESIC                          /00070401/ [Concomitant]
     Dosage: UNK
     Dates: end: 20060414
  13. LOTENSIN                           /00498401/ [Concomitant]
     Dosage: 20 MG, QD
     Route: 048
     Dates: start: 20060424
  14. LIPITOR [Concomitant]
     Dosage: 10 MG, QD
     Route: 048
  15. K-DUR [Concomitant]
     Dosage: 20 MEQ, QD
  16. INSULIN [Concomitant]
     Dosage: 100 UNIT, UNK
  17. CLARITIN                           /00413701/ [Concomitant]
     Indication: HYPERSENSITIVITY
     Dosage: 10 MG, 1 PRN
  18. ASPIRIN [Concomitant]
     Dosage: 325 MG, UNK
  19. FUROSEMIDE [Concomitant]
     Dosage: 40 MG, UNK
  20. POTASSIUM [Concomitant]
     Dosage: 10 MG, QD
     Route: 048
  21. CLARINEX                           /01202601/ [Concomitant]
     Dosage: UNK
  22. METHYLPREDNISOLONE [Concomitant]
     Dosage: 125 MG, UNK
     Dates: start: 20060422
  23. ROCEPHIN [Concomitant]
     Dosage: 1 GM, UNK
     Route: 042
     Dates: start: 20060422
  24. CEFTRIAXONE SODIUM [Concomitant]
     Dosage: 1000 MG, UNK
     Dates: start: 20060422
  25. NORMAL SALINE [Concomitant]
     Dosage: 100 ML, MINIBAG
     Dates: start: 20060422
  26. NORMAL SALINE [Concomitant]
     Dosage: 250 ML, UNK
     Route: 042
     Dates: start: 20060422
  27. NORMAL SALINE [Concomitant]
     Dosage: 1000 ML, BAG
     Route: 042
     Dates: start: 20060422
  28. NORMAL SALINE [Concomitant]
     Dosage: 10 ML FLUSH, UNK
     Route: 042
  29. PROMETHAZINE [Concomitant]
     Dosage: 25 MG, UNK
     Dates: start: 20060422
  30. ZITHROMAX [Concomitant]
     Dosage: 500 MG,
     Route: 042
     Dates: start: 20060422
  31. PROTONIX [Concomitant]
     Dosage: 40 MG, UNK
     Route: 042
     Dates: start: 20060422
  32. LOTENSIN                           /00498401/ [Concomitant]
     Dosage: 20 MG, UNK
     Dates: start: 20060422
  33. FLONASE [Concomitant]
     Dosage: 0.05 %, BID
     Dates: start: 20060422
  34. LEVAQUIN [Concomitant]
     Dosage: 500MG/100ML, UNK
     Dates: start: 20060422
  35. MORPHINE SULPHATE [Concomitant]
     Dosage: 10 MG, 2-3 HP/AS NECESSARY
     Dates: start: 20060422
  36. LANTUS [Concomitant]
     Dosage: 100 UNIT, QMO
     Route: 058
     Dates: start: 20060423
  37. LANTUS [Concomitant]
     Dosage: 70 UNIT, Q24H
     Route: 042
  38. LANTUS [Concomitant]
     Dosage: 43 UNIT, 2 TIMES/WK
     Route: 058
  39. PEPCID                             /00706001/ [Concomitant]
     Dosage: 20 MG, UNK
     Dates: start: 20060423
  40. OXYGEN [Concomitant]
     Dosage: UNK
     Dates: start: 20060423
  41. ALBUTEROL                          /00139501/ [Concomitant]
     Dosage: 2.5/1.5 MG, UNK
     Dates: start: 20060422
  42. IPRATROPIUM [Concomitant]
     Dosage: 2.5/1.5 MG
     Dates: start: 20060422
  43. TRICOR                             /00090101/ [Concomitant]
     Dosage: 145 MG, UNK
     Dates: start: 20060424
  44. TOBREX [Concomitant]
     Dosage: 3.5 %, BID
     Route: 047
     Dates: start: 20060424
  45. VITAMIN B 12 [Concomitant]
     Dosage: 1000 MG, UNK
     Dates: start: 20060424
  46. VITAMIN B 12 [Concomitant]
     Dosage: 1000 MUG, UNK
     Dates: start: 20060424
  47. NARCAN [Concomitant]
     Dosage: 0.4 MG, AS NECESSARY
     Route: 042
     Dates: start: 20060424
  48. THERAGENERIX [Concomitant]
     Dosage: UNK
     Dates: start: 20060424
  49. GLUCOSE [Concomitant]
     Dosage: UNK
     Dates: start: 20060424
  50. GLUCOSE [Concomitant]
     Dosage: 25 GM/50ML
     Dates: start: 20060501
  51. IRON [Concomitant]
     Dosage: UNK
     Dates: start: 20060424
  52. IRON [Concomitant]
     Dosage: 325 MG, TID
     Dates: start: 20060424
  53. FERRITIN [Concomitant]
     Dosage: UNK
     Dates: start: 20060424
  54. FOLATE [Concomitant]
     Dosage: UNK
     Dates: start: 20060424
  55. ERYTHROPOIETIN [Concomitant]
     Dosage: UNK
     Dates: start: 20060424
  56. REGLAN                             /00041901/ [Concomitant]
     Dosage: 10 MG, EVERY SIX HOURS
     Dates: start: 20060425
  57. ICAR-C [Concomitant]
     Dosage: 1 DF, BID
     Route: 048
     Dates: start: 20060425
  58. ZOFRAN                             /00955301/ [Concomitant]
     Dosage: 4 MG/2ML, AS NECESSARY
     Route: 042
     Dates: start: 20060425
  59. MARCAINE                           /00330101/ [Concomitant]
     Dosage: 25 %, 30 ML, UNK
     Dates: start: 20060426
  60. EPINEPHRINE [Concomitant]
     Dosage: 25 %, 30 ML, UNK
     Dates: start: 20060426
  61. STERILE WATER [Concomitant]
     Dosage: 1000 ML, UNK
     Dates: start: 20060426
  62. XYLOCAINE                          /00033401/ [Concomitant]
     Dosage: 1 %, 30ML
     Dates: start: 20060426
  63. PROCHLORPERAZINE [Concomitant]
     Dosage: 10 MG/ 2ML, UNK
     Dates: start: 20060428
  64. BUPIVACAINE [Concomitant]
     Dosage: 0.5 %, 30 ML
     Dates: start: 20060429
  65. SUBLIMAZE                          /00174601/ [Concomitant]
     Dosage: 250 MUG/ 5ML, UNK
     Dates: start: 20060429
  66. DIPHENHYDRAMINE [Concomitant]
     Dosage: 50 MG, UNK
     Dates: start: 20060429
  67. BENADRYL                           /00000402/ [Concomitant]
     Dosage: 50 MG, UNK
     Dates: start: 20060429
  68. BENADRYL                           /00000402/ [Concomitant]
     Dosage: 25 MG, AS NECESSARY
     Route: 042
  69. MAALOX PLUS                        /00018101/ [Concomitant]
     Dosage: 30 ML, UNK
     Dates: start: 20060430
  70. NEO-SYNEPHRINE                     /00070002/ [Concomitant]
     Dosage: UNK
     Dates: start: 20060430
  71. PHENYLEPHRINE [Concomitant]
     Dosage: 0.5 %, UNK
     Dates: start: 20060430
  72. MILK OF MAGNESIA [Concomitant]
     Dosage: 10 ML, AS NECESSARY
     Route: 048
     Dates: start: 20060502
  73. DEXTROSE + SODIUM CHLORIDE [Concomitant]
     Dosage: 1000 ML, UNK
     Dates: start: 20060501
  74. DEXTROSE + SODIUM CHLORIDE [Concomitant]
     Dosage: 40 ML/HOUR, UNK
  75. DUONEB [Concomitant]
     Dosage: UNK
  76. PHENERGAN                          /00033001/ [Concomitant]
     Dosage: 12.5 MG, AS NECESSARY
     Route: 042
  77. THERAGRAN                          /01824401/ [Concomitant]
     Dosage: 1 DF, QD
     Route: 048
  78. TYLENOL                            /00020001/ [Concomitant]
     Dosage: 1000 MG, QD
     Route: 048
  79. NOVOLIN [Concomitant]
     Dosage: UNK UNK, AS NECESSARY
     Route: 058
  80. FENTANYL [Concomitant]
     Dosage: 500 MUG/10 ML, UNK
  81. MULTIVITAMINS, PLAIN [Concomitant]
     Dosage: UNK
     Route: 048
     Dates: start: 20060424
  82. NALOXONE [Concomitant]
     Dosage: 0.4 MG, UNK
     Route: 042
     Dates: start: 20060424
  83. COMPAZINE                          /00013302/ [Concomitant]
     Dosage: 10 MG, UNK

REACTIONS (16)
  - Cardiac arrest [Fatal]
  - Anaemia [Fatal]
  - Circulatory collapse [Fatal]
  - Pulmonary embolism [Fatal]
  - Deep vein thrombosis [Fatal]
  - Injury [Fatal]
  - Lumbar vertebral fracture [Fatal]
  - Rib fracture [Fatal]
  - Fall [Fatal]
  - Haemothorax [Fatal]
  - Hypoventilation [Fatal]
  - Pleural effusion [Unknown]
  - Lobar pneumonia [Unknown]
  - Atelectasis [Unknown]
  - Cardiomegaly [Unknown]
  - Blood homocysteine increased [Unknown]
